FAERS Safety Report 7260568-7 (Version None)
Quarter: 2011Q1

REPORT INFORMATION
  Report Type: 
  Country: None (occurrence: None)
  Receive Date: 20110130
  Receipt Date: 20101216
  Transmission Date: 20110831
  Serious: No
  Sender: FDA-Public Use
  Company Number: US-ABBOTT-10P-163-0692734-00

PATIENT
  Sex: Male
  Weight: 63.56 kg

DRUGS (4)
  1. PREDNISONE [Concomitant]
     Indication: CROHN'S DISEASE
  2. FLAGYL [Concomitant]
     Indication: CROHN'S DISEASE
  3. HUMIRA [Suspect]
     Dates: start: 20100601
  4. HUMIRA [Suspect]
     Indication: CROHN'S DISEASE
     Dates: start: 20100329, end: 20100601

REACTIONS (10)
  - DEPRESSION [None]
  - PAIN [None]
  - WEIGHT DECREASED [None]
  - CROHN'S DISEASE [None]
  - DRUG INEFFECTIVE [None]
  - SUICIDAL IDEATION [None]
  - DIARRHOEA [None]
  - APATHY [None]
  - HAEMATOCHEZIA [None]
  - DECREASED APPETITE [None]
